FAERS Safety Report 5281955-2 (Version None)
Quarter: 2007Q1

REPORT INFORMATION
  Report Type: 
  Country: None (occurrence: None)
  Receive Date: 20070330
  Receipt Date: 20070320
  Transmission Date: 20070707
  Serious: Yes (Hospitalization)
  Sender: FDA-Public Use
  Company Number: ES-SANOFI-SYNTHELABO-A01200702980

PATIENT
  Age: 62 Year
  Sex: Male

DRUGS (4)
  1. ACETAMINOPHEN [Concomitant]
     Route: 065
  2. OXALIPLATIN [Suspect]
     Indication: BLADDER CANCER
     Dosage: UNK
     Route: 042
  3. GEMCITABINE [Suspect]
     Dosage: UNK
     Route: 042
  4. TRAMADOL HCL [Concomitant]
     Route: 065

REACTIONS (1)
  - REVERSIBLE POSTERIOR LEUKOENCEPHALOPATHY SYNDROME [None]
